FAERS Safety Report 17902224 (Version 1)
Quarter: 2020Q2

REPORT INFORMATION
  Report Type: Spontaneous
  Country: US (occurrence: US)
  Receive Date: 20200616
  Receipt Date: 20200616
  Transmission Date: 20200714
  Serious: No
  Sender: FDA-Public Use
  Company Number: US-KROGER PREMIER BRANDS OF AMERICA INC.-2085983

PATIENT
  Age: 74 Year
  Sex: Female

DRUGS (2)
  1. CEPHALEXIN. [Concomitant]
     Active Substance: CEPHALEXIN
     Route: 002
     Dates: start: 20200506
  2. LIQUID CORN AND CALLUS REMOVER [Suspect]
     Active Substance: SALICYLIC ACID
     Indication: SKIN LESION REMOVAL
     Route: 003
     Dates: start: 20200403, end: 20200408

REACTIONS (1)
  - Cellulitis [Recovering/Resolving]

NARRATIVE: CASE EVENT DATE: 20200506
